FAERS Safety Report 5520192-0 (Version None)
Quarter: 2007Q4

REPORT INFORMATION
  Report Type: 
  Country: None (occurrence: None)
  Receive Date: 20071116
  Receipt Date: 20071113
  Transmission Date: 20080405
  Serious: Yes (Death)
  Sender: FDA-Public Use
  Company Number: US-GENENTECH-246598

PATIENT
  Sex: Female

DRUGS (26)
  1. RANIBIZUMAB [Suspect]
     Indication: CHOROIDAL NEOVASCULARISATION
     Dosage: 0.5 MG, UNK
     Route: 031
     Dates: start: 20030604
  2. RANIBIZUMAB [Suspect]
     Indication: MACULAR DEGENERATION
  3. LANTUS [Concomitant]
     Indication: TYPE 1 DIABETES MELLITUS
     Dates: start: 20050702
  4. HUMALOG [Concomitant]
     Indication: TYPE 1 DIABETES MELLITUS
     Dates: start: 20050702
  5. FEOSOL [Concomitant]
     Indication: BLOOD IRON DECREASED
     Dates: start: 20040319
  6. LEVOTHYROXINE SODIUM [Concomitant]
     Indication: HYPOTHYROIDISM
     Dates: start: 20041101
  7. OXYGEN [Concomitant]
     Indication: ASTHMA
     Dates: start: 20000101
  8. FLONASE [Concomitant]
     Indication: ASTHMA
     Dates: start: 20050702
  9. LASIX [Concomitant]
     Indication: DIURETIC THERAPY
     Dates: start: 20050324
  10. ASACOL [Concomitant]
     Indication: COLITIS
     Dates: start: 20040416
  11. FORADIL [Concomitant]
     Indication: ASTHMA
     Dates: start: 20040703
  12. ASPIRIN [Concomitant]
     Indication: PROPHYLAXIS
     Dates: start: 20020101
  13. SPIRIVA [Concomitant]
     Indication: ASTHMA
     Dates: start: 20040829
  14. XOPENEX [Concomitant]
     Indication: ASTHMA
     Dates: start: 20050421
  15. PREDNISONE TAB [Concomitant]
     Indication: ASTHMA
     Dates: start: 20040805
  16. PRILOSEC [Concomitant]
     Indication: GASTROOESOPHAGEAL REFLUX DISEASE
  17. MEDICATION (UNK INGREDIENT) [Concomitant]
     Indication: HYPERCHOLESTEROLAEMIA
     Dates: start: 20050601
  18. ZAROXOLYN [Concomitant]
     Indication: DIURETIC THERAPY
     Dates: start: 20050702
  19. ACULAR [Concomitant]
     Indication: GLAUCOMA
     Dates: start: 20050720
  20. AZOPT [Concomitant]
     Indication: GLAUCOMA
  21. XALATAN [Concomitant]
     Indication: GLAUCOMA
     Dates: start: 20060313
  22. COUMADIN [Concomitant]
     Indication: PROPHYLAXIS
     Dates: start: 20060420
  23. BENICAR [Concomitant]
     Indication: HYPERTENSION
     Dates: start: 20060613
  24. HYDRODIURIL [Concomitant]
     Indication: HYPERTENSION
     Dates: start: 20060613
  25. ALLOPURINOL [Concomitant]
     Indication: GOUT
     Dates: start: 20060613
  26. PROCRIT [Concomitant]
     Indication: ANAEMIA

REACTIONS (1)
  - CHRONIC OBSTRUCTIVE PULMONARY DISEASE [None]
